FAERS Safety Report 20524810 (Version 3)
Quarter: 2022Q2

REPORT INFORMATION
  Report Type: Spontaneous
  Country: CN (occurrence: CN)
  Receive Date: 20220228
  Receipt Date: 20220506
  Transmission Date: 20220721
  Serious: Yes (Life-Threatening, Hospitalization, Other)
  Sender: FDA-Public Use
  Company Number: CN-MLMSERVICE-20220216-3378733-1

PATIENT
  Age: 65 Year
  Sex: Male

DRUGS (11)
  1. OXALIPLATIN [Suspect]
     Active Substance: OXALIPLATIN
     Indication: Natural killer-cell lymphoblastic lymphoma
     Dosage: EVERY 3 WEEKS
     Dates: start: 20200807
  2. OXALIPLATIN [Suspect]
     Active Substance: OXALIPLATIN
     Indication: T-cell lymphoma
  3. GEMCITABINE [Suspect]
     Active Substance: GEMCITABINE
     Indication: Natural killer-cell lymphoblastic lymphoma
     Dosage: EVERY 3 WEEKS
     Dates: start: 20200807
  4. GEMCITABINE [Suspect]
     Active Substance: GEMCITABINE
     Indication: T-cell lymphoma
  5. SINTILIMAB [Suspect]
     Active Substance: SINTILIMAB
     Indication: T-cell lymphoma
     Dosage: 200 MG, Q3W,
     Route: 042
     Dates: start: 20200807
  6. SINTILIMAB [Suspect]
     Active Substance: SINTILIMAB
     Indication: Natural killer-cell lymphoblastic lymphoma
     Dosage: 200 MG
     Route: 042
     Dates: start: 202008
  7. SINTILIMAB [Suspect]
     Active Substance: SINTILIMAB
     Dosage: 200 MG
     Route: 042
     Dates: start: 20200818
  8. SINTILIMAB [Suspect]
     Active Substance: SINTILIMAB
     Dosage: 200 MG
     Route: 042
     Dates: start: 20200919
  9. SINTILIMAB [Suspect]
     Active Substance: SINTILIMAB
     Dosage: 200 MG
     Route: 042
     Dates: start: 20201012
  10. PEGASPARGASE [Suspect]
     Active Substance: PEGASPARGASE
     Indication: T-cell lymphoma
     Dosage: EVERY 3 WEEKS
     Dates: start: 20200807
  11. PEGASPARGASE [Suspect]
     Active Substance: PEGASPARGASE
     Indication: Natural killer-cell lymphoblastic lymphoma

REACTIONS (9)
  - Toxic epidermal necrolysis [Recovered/Resolved]
  - Rash pruritic [Recovered/Resolved]
  - Rash [Recovered/Resolved]
  - Dermatitis bullous [Recovered/Resolved]
  - Condition aggravated [Recovered/Resolved]
  - Skin discolouration [Recovered/Resolved]
  - Necrosis [Recovered/Resolved]
  - Skin exfoliation [Recovered/Resolved]
  - Depression [Recovering/Resolving]

NARRATIVE: CASE EVENT DATE: 20201023
